FAERS Safety Report 11721039 (Version 1)
Quarter: 2015Q4

REPORT INFORMATION
  Report Type: Spontaneous
  Country: US (occurrence: US)
  Receive Date: 20151110
  Receipt Date: 20151110
  Transmission Date: 20160304
  Serious: No
  Sender: FDA-Public Use
  Company Number: US-SA-2015SA167192

PATIENT
  Sex: Male

DRUGS (4)
  1. PRALUENT [Suspect]
     Active Substance: ALIROCUMAB
     Indication: IMMUNISATION
     Dosage: EVERY 2 WEEKS(Q2W) DOSE:75 MILLIGRAM(S)/MILLILITRE
     Route: 058
  2. INFLUENZA VACCINE [Suspect]
     Active Substance: INFLUENZA VIRUS VACCINE
     Indication: IMMUNISATION
     Route: 065
  3. PRALUENT [Suspect]
     Active Substance: ALIROCUMAB
     Indication: IMMUNISATION
     Dosage: EVERY 2 WEEKS(Q2W) DOSE:75 MILLIGRAM(S)/MILLILITRE
     Route: 058
  4. PRALUENT [Suspect]
     Active Substance: ALIROCUMAB
     Indication: IMMUNISATION
     Dosage: EVERY 2 WEEKS(Q2W) DOSE:75 MILLIGRAM(S)/MILLILITRE
     Route: 058
     Dates: start: 20150903, end: 20150903

REACTIONS (2)
  - Influenza like illness [Recovering/Resolving]
  - Nasal congestion [Recovering/Resolving]
